FAERS Safety Report 22245485 (Version 1)
Quarter: 2023Q2

REPORT INFORMATION
  Report Type: Spontaneous
  Country: US (occurrence: None)
  Receive Date: 20230423
  Receipt Date: 20230423
  Transmission Date: 20230722
  Serious: Yes (Hospitalization, Other)
  Sender: FDA-Public Use
  Company Number: None

PATIENT
  Age: 27 Year
  Sex: Female
  Weight: 81 kg

DRUGS (5)
  1. LEVOFLOXACIN [Suspect]
     Active Substance: LEVOFLOXACIN
     Indication: Bacterial infection
     Dosage: OTHER QUANTITY : 5 TABLET(S);?
     Route: 048
     Dates: start: 20230411, end: 20230416
  2. URIBEL [Concomitant]
     Active Substance: HYOSCYAMINE SULFATE\METHENAMINE\METHYLENE BLUE\PHENYL SALICYLATE\SODIUM PHOSPHATE, MONOBASIC, MONOHY
  3. Amtripyline [Concomitant]
  4. Buprionuon [Concomitant]
  5. PROBIOTICS NOS [Concomitant]
     Active Substance: PROBIOTICS NOS

REACTIONS (22)
  - Vomiting [None]
  - Diarrhoea haemorrhagic [None]
  - Faeces discoloured [None]
  - Dizziness [None]
  - Fatigue [None]
  - Dizziness [None]
  - Asthenia [None]
  - Malaise [None]
  - Asthenia [None]
  - Chest discomfort [None]
  - Hypoaesthesia [None]
  - Paraesthesia [None]
  - Nausea [None]
  - Back pain [None]
  - Abdominal pain upper [None]
  - Tachycardia [None]
  - Anxiety [None]
  - Dyspnoea [None]
  - Blood pressure increased [None]
  - Blood magnesium decreased [None]
  - Sepsis [None]
  - Vertigo [None]

NARRATIVE: CASE EVENT DATE: 20230411
